FAERS Safety Report 8608931-3 (Version None)
Quarter: 2012Q3

REPORT INFORMATION
  Report Type: 
  Country: None (occurrence: None)
  Receive Date: 20120821
  Receipt Date: 20120724
  Transmission Date: 20120928
  Serious: No
  Sender: FDA-Public Use
  Company Number: US-BAYER-2012-083489

PATIENT
  Age: 51 Year
  Sex: Male

DRUGS (1)
  1. AVELOX [Suspect]
     Indication: UNEVALUABLE EVENT
     Dosage: 400 MG, QD
     Route: 048
     Dates: start: 20120701

REACTIONS (1)
  - DIZZINESS [None]
